FAERS Safety Report 10384445 (Version 1)
Quarter: 2014Q3

REPORT INFORMATION
  Report Type: Spontaneous
  Country: US (occurrence: None)
  Receive Date: 20140813
  Receipt Date: 20140813
  Transmission Date: 20150326
  Serious: Yes (Hospitalization, Disabling)
  Sender: FDA-Public Use
  Company Number: None

PATIENT
  Age: 15 Year
  Sex: Male
  Weight: 81.65 kg

DRUGS (7)
  1. VITAMIN C SUPPLEMENT [Concomitant]
  2. MESTONIN [Concomitant]
  3. CELLCEPT [Concomitant]
     Active Substance: MYCOPHENOLATE MOFETIL\MYCOPHENOLATE MOFETIL HYDROCHLORIDE
  4. PREDNISONE. [Concomitant]
     Active Substance: PREDNISONE
  5. IRON SUPPLEMENT [Concomitant]
     Active Substance: IRON
  6. VYVANSE [Suspect]
     Active Substance: LISDEXAMFETAMINE DIMESYLATE
     Indication: ATTENTION DEFICIT/HYPERACTIVITY DISORDER
     Dosage: 1 PILL PER DAY  ONCE A DAY IN THE  A.M.  BY MOUTH
     Route: 048
     Dates: start: 20131118, end: 20140215
  7. VITAMIN D [Concomitant]
     Active Substance: CHOLECALCIFEROL

REACTIONS (4)
  - Vision blurred [None]
  - Myasthenia gravis [None]
  - Dry eye [None]
  - Eyelid ptosis [None]

NARRATIVE: CASE EVENT DATE: 201312
